FAERS Safety Report 23967294 (Version 1)
Quarter: 2024Q2

REPORT INFORMATION
  Report Type: Spontaneous
  Country: SE (occurrence: SE)
  Receive Date: 20240612
  Receipt Date: 20240612
  Transmission Date: 20240716
  Serious: Yes (Other)
  Sender: FDA-Public Use
  Company Number: None

PATIENT
  Age: 75 Year
  Sex: Male

DRUGS (3)
  1. METHOTREXATE [Suspect]
     Active Substance: METHOTREXATE
     Indication: Product used for unknown indication
     Dosage: UNK
     Route: 065
     Dates: start: 202312
  2. INFLIXIMAB [Suspect]
     Active Substance: INFLIXIMAB
     Indication: Product used for unknown indication
     Dosage: 10 MG/KG,1 IN 7 WK
     Route: 065
     Dates: start: 20230320
  3. INFLIXIMAB [Suspect]
     Active Substance: INFLIXIMAB
     Indication: Product used for unknown indication
     Dosage: ONE DOSE (10 MG/KG,1 IN 7 WK)
     Route: 065
     Dates: start: 20230320

REACTIONS (5)
  - Severe cutaneous adverse reaction [Not Recovered/Not Resolved]
  - Product complaint [Unknown]
  - Rash [Not Recovered/Not Resolved]
  - Product substitution issue [Unknown]
  - Hypersensitivity [Not Recovered/Not Resolved]

NARRATIVE: CASE EVENT DATE: 20230403
